FAERS Safety Report 4318830-3 (Version None)
Quarter: 2004Q1

REPORT INFORMATION
  Report Type: 
  Country: None (occurrence: None)
  Receive Date: 20040315
  Receipt Date: 20040301
  Transmission Date: 20041129
  Serious: Yes (Disabling, Congenital Anomaly)
  Sender: FDA-Public Use
  Company Number: 2004013938

PATIENT

DRUGS (3)
  1. ATARAX [Suspect]
     Indication: ILL-DEFINED DISORDER
     Dosage: 50 MG (ONCE),
     Dates: start: 20010201, end: 20010201
  2. HYDROCORTISONE [Suspect]
     Indication: ILL-DEFINED DISORDER
     Dosage: 1 DF
     Dates: start: 20010201, end: 20010201
  3. DIPHENHYDRAMINE HCL [Suspect]
     Indication: ILL-DEFINED DISORDER
     Dosage: 150 MG
     Dates: start: 20010201, end: 20010205

REACTIONS (4)
  - ABORTION INDUCED [None]
  - COMPLICATIONS OF MATERNAL EXPOSURE TO THERAPEUTIC DRUGS [None]
  - MATERNAL DRUGS AFFECTING FOETUS [None]
  - TRISOMY 21 [None]
